FAERS Safety Report 11412861 (Version 2)
Quarter: 2015Q3

REPORT INFORMATION
  Report Type: Spontaneous
  Country: US (occurrence: US)
  Receive Date: 20150821
  Receipt Date: 20150903
  Transmission Date: 20151125
  Serious: No
  Sender: FDA-Public Use
  Company Number: US-ELI_LILLY_AND_COMPANY-US201206007351

PATIENT
  Sex: Male

DRUGS (3)
  1. HUMALOG [Suspect]
     Active Substance: INSULIN LISPRO
     Indication: TYPE 1 DIABETES MELLITUS
     Dosage: UNK
  2. HUMULIN R [Suspect]
     Active Substance: INSULIN HUMAN
     Indication: TYPE 1 DIABETES MELLITUS
     Route: 058
  3. APIDRA [Concomitant]
     Active Substance: INSULIN GLULISINE
     Dosage: UNK, UNKNOWN

REACTIONS (3)
  - Drug effect decreased [Recovered/Resolved]
  - Blood glucose decreased [Unknown]
  - Blood glucose increased [Unknown]
